FAERS Safety Report 25425059 (Version 1)
Quarter: 2025Q2

REPORT INFORMATION
  Report Type: Spontaneous
  Country: PL (occurrence: PL)
  Receive Date: 20250611
  Receipt Date: 20250611
  Transmission Date: 20250716
  Serious: Yes (Other)
  Sender: SANDOZ
  Company Number: PL-009507513-2291328

PATIENT
  Age: 72 Year
  Sex: Female

DRUGS (3)
  1. CARBOPLATIN [Suspect]
     Active Substance: CARBOPLATIN
     Indication: Non-small cell lung cancer
     Dosage: AUC 5, Q3W
     Route: 065
     Dates: start: 202109
  2. PEMETREXED [Suspect]
     Active Substance: PEMETREXED
     Indication: Non-small cell lung cancer
     Dosage: 500 MG/M2, Q3W
     Route: 065
     Dates: start: 202109
  3. PEMBROLIZUMAB [Suspect]
     Active Substance: PEMBROLIZUMAB
     Indication: Non-small cell lung cancer
     Dosage: 200 MG, Q3W
     Route: 065
     Dates: start: 202109

REACTIONS (7)
  - Immune-mediated enterocolitis [Recovered/Resolved]
  - Hypothyroidism [Unknown]
  - Asthenia [Unknown]
  - Bradycardia [Unknown]
  - Superficial vein thrombosis [Unknown]
  - Gastrointestinal tract adenoma [Unknown]
  - Swelling [Unknown]

NARRATIVE: CASE EVENT DATE: 20210101
